FAERS Safety Report 10933755 (Version 1)
Quarter: 2015Q1

REPORT INFORMATION
  Report Type: Spontaneous
  Country: US (occurrence: US)
  Receive Date: 20150320
  Receipt Date: 20150320
  Transmission Date: 20150721
  Serious: Yes (Hospitalization, Other)
  Sender: FDA-Public Use
  Company Number: US-DSJP-DSU-2014-124886

PATIENT

DRUGS (3)
  1. BENICAR [Suspect]
     Active Substance: OLMESARTAN MEDOXOMIL
     Indication: BLOOD PRESSURE
     Dosage: 40 MG, QD
     Dates: start: 20080929, end: 201110
  2. BENICAR [Suspect]
     Active Substance: OLMESARTAN MEDOXOMIL
     Dosage: UNK
     Dates: start: 2012, end: 20121024
  3. BENICAR [Suspect]
     Active Substance: OLMESARTAN MEDOXOMIL
     Dosage: UNK
     Dates: start: 20120706, end: 201209

REACTIONS (22)
  - Sepsis [Unknown]
  - Hiatus hernia [Unknown]
  - Gastrointestinal haemorrhage [Unknown]
  - Tachycardia [Unknown]
  - Metabolic acidosis [Unknown]
  - Haemorrhoids [Unknown]
  - Acute kidney injury [Unknown]
  - Pain [Unknown]
  - Gastrooesophageal reflux disease [Unknown]
  - Emotional distress [Unknown]
  - Hypotension [Unknown]
  - Constipation [Unknown]
  - Catabolic state [Unknown]
  - Oesophageal achalasia [Unknown]
  - Deep vein thrombosis [Unknown]
  - Dermatitis [Unknown]
  - Skin disorder [Unknown]
  - Depression [Unknown]
  - Leukocytosis [Recovered/Resolved]
  - Small intestinal obstruction [Recovered/Resolved]
  - Malabsorption [Unknown]
  - Melanosis coli [Unknown]

NARRATIVE: CASE EVENT DATE: 2011
